FAERS Safety Report 9477956 (Version 1)
Quarter: 2013Q3

REPORT INFORMATION
  Report Type: Spontaneous
  Country: US (occurrence: None)
  Receive Date: 20130822
  Receipt Date: 20130822
  Transmission Date: 20140515
  Serious: Yes (Other)
  Sender: FDA-Public Use
  Company Number: JPI-P-034430

PATIENT
  Age: 36 Year
  Sex: Female
  Weight: 70.31 kg

DRUGS (2)
  1. XYREM [Suspect]
     Indication: NARCOLEPSY
     Route: 048
     Dates: start: 200909
  2. MODAFINIL [Concomitant]

REACTIONS (2)
  - Ligament rupture [None]
  - Musculoskeletal pain [None]
